FAERS Safety Report 8833917 (Version 1)
Quarter: 2012Q4

REPORT INFORMATION
  Report Type: 
  Country: PL (occurrence: PL)
  Receive Date: 20121010
  Receipt Date: 20121010
  Transmission Date: 20130627
  Serious: Yes (Hospitalization)
  Sender: FDA-Public Use
  Company Number: PL-MYLANLABS-2012S1020299

PATIENT
  Age: 1 Year
  Sex: Female

DRUGS (2)
  1. TACROLIMUS [Suspect]
     Indication: IMMUNOSUPPRESSANT DRUG THERAPY
     Route: 065
  2. PREDNISONE [Concomitant]
     Indication: IMMUNOSUPPRESSANT DRUG THERAPY
     Route: 065

REACTIONS (2)
  - Thrombotic microangiopathy [Recovered/Resolved]
  - Toxicity to various agents [Recovered/Resolved]
